FAERS Safety Report 11797334 (Version 4)
Quarter: 2016Q1

REPORT INFORMATION
  Report Type: Report from Study
  Country: US (occurrence: US)
  Receive Date: 20151203
  Receipt Date: 20160105
  Transmission Date: 20160525
  Serious: Yes (Death, Hospitalization)
  Sender: FDA-Public Use
  Company Number: US-BAYER-2015-476906

PATIENT
  Age: 62 Year
  Sex: Female
  Weight: 95.24 kg

DRUGS (8)
  1. XARELTO [Concomitant]
     Active Substance: RIVAROXABAN
  2. ADEMPAS [Suspect]
     Active Substance: RIOCIGUAT
     Indication: PULMONARY ARTERIAL HYPERTENSION
     Dosage: UNK
     Dates: start: 20151121
  3. DILTIAZEM [Concomitant]
     Active Substance: DILTIAZEM
  4. INSULIN [Concomitant]
     Active Substance: INSULIN NOS
  5. SOTALOL. [Concomitant]
     Active Substance: SOTALOL
  6. BUMEX [Concomitant]
     Active Substance: BUMETANIDE
  7. PREDNISONE. [Concomitant]
     Active Substance: PREDNISONE
  8. ADEMPAS [Suspect]
     Active Substance: RIOCIGUAT
     Indication: PULMONARY ARTERIAL HYPERTENSION
     Dosage: 0.5 MG, TID
     Route: 048

REACTIONS (7)
  - Hypotension [None]
  - Pneumonia [Fatal]
  - Oxygen consumption increased [Fatal]
  - Hospitalisation [Unknown]
  - Dyspnoea [Fatal]
  - Sepsis [None]
  - Headache [Unknown]
